FAERS Safety Report 23195631 (Version 2)
Quarter: 2024Q1

REPORT INFORMATION
  Report Type: Spontaneous
  Country: PH (occurrence: PH)
  Receive Date: 20231117
  Receipt Date: 20240104
  Transmission Date: 20240410
  Serious: Yes (Disabling)
  Sender: FDA-Public Use
  Company Number: PH-IPCA LABORATORIES LIMITED-IPC-2023-PH-002016

PATIENT

DRUGS (3)
  1. HYDROXYCHLOROQUINE SULFATE [Suspect]
     Active Substance: HYDROXYCHLOROQUINE SULFATE
     Indication: Autoimmune disorder
     Dosage: 1 DOSAGE FORM, QD
     Route: 048
     Dates: start: 20221125, end: 20221126
  2. PLOGREL [Concomitant]
     Indication: Thrombosis
     Dosage: 75 MILLIGRAM, QD
     Route: 065
     Dates: start: 202205
  3. VESTAR MR [Concomitant]
     Indication: Angina pectoris
     Dosage: 35 MILLIGRAM, BID
     Route: 065
     Dates: start: 202205

REACTIONS (1)
  - Diplopia [Recovered/Resolved]

NARRATIVE: CASE EVENT DATE: 20221125
